FAERS Safety Report 11922122 (Version 2)
Quarter: 2016Q1

REPORT INFORMATION
  Report Type: Spontaneous
  Country: IT (occurrence: IT)
  Receive Date: 20160115
  Receipt Date: 20160223
  Transmission Date: 20160526
  Serious: Yes (Hospitalization)
  Sender: FDA-Public Use
  Company Number: PHHY2016IT002155

PATIENT
  Age: 54 Year
  Sex: Female

DRUGS (1)
  1. CEFTRIAXONE. [Suspect]
     Active Substance: CEFTRIAXONE
     Indication: PHARYNGITIS
     Dosage: 2 DF, ONCE/SINGLE
     Route: 030
     Dates: start: 20151120, end: 20151121

REACTIONS (3)
  - Rash [Recovered/Resolved]
  - Choking sensation [Recovered/Resolved]
  - Hypersensitivity [Recovered/Resolved]

NARRATIVE: CASE EVENT DATE: 20151121
